FAERS Safety Report 13269215 (Version 4)
Quarter: 2017Q3

REPORT INFORMATION
  Report Type: Spontaneous
  Country: KR (occurrence: KR)
  Receive Date: 20170224
  Receipt Date: 20170801
  Transmission Date: 20171127
  Serious: Yes (Other)
  Sender: FDA-Public Use
  Company Number: KR-009507513-1702KOR009833

PATIENT
  Age: 82 Year
  Sex: Male
  Weight: 75.5 kg

DRUGS (13)
  1. MUCOSTA [Concomitant]
     Active Substance: REBAMIPIDE
     Indication: PROPHYLAXIS
     Dosage: 100 MG, ONCE (1 TABLET)
     Route: 048
     Dates: start: 20160325
  2. URSA TABLETS [Concomitant]
     Indication: HEPATIC CANCER
     Dosage: 100 MG, ONCE (1 TABLET)
     Route: 048
     Dates: start: 20160325
  3. TRIDOL (TRAMADOL HYDROCHLORIDE) [Concomitant]
     Indication: PAIN
     Dosage: STRENGTH: 50MG/ML; 50 MG, ONCE
     Route: 042
     Dates: start: 20160320, end: 20160322
  4. EMEND (FOSAPREPITANT DIMEGLUMINE) [Suspect]
     Active Substance: FOSAPREPITANT DIMEGLUMINE
     Indication: PROPHYLAXIS OF NAUSEA AND VOMITING
     Dosage: 150 MG, ONCE
     Route: 042
     Dates: start: 20160325, end: 20160325
  5. CISPLAN [Concomitant]
     Active Substance: CISPLATIN
     Indication: NEUROENDOCRINE CARCINOMA
     Dosage: STRENGTH: 50MG/100ML; 100 MG, ONCE, CYCLE 1
     Route: 042
     Dates: start: 20160325, end: 20160325
  6. ALOXI [Concomitant]
     Active Substance: PALONOSETRON HYDROCHLORIDE
     Indication: PREMEDICATION
     Dosage: 0.25, MG, ONCE
     Route: 042
     Dates: start: 20160325, end: 20160325
  7. STOGAR [Concomitant]
     Active Substance: LAFUTIDINE
     Indication: PROPHYLAXIS
     Dosage: 10 MG, ONCE (1 TABLET)
     Route: 048
     Dates: start: 20160319
  8. GODEX (ADENINE HYDROCHLORIDE (+) BIFENDATE (+) CARNITINE OROTATE (+) C [Concomitant]
     Indication: HEPATIC CANCER
     Dosage: 1 DF, QD
     Route: 048
     Dates: start: 20160325
  9. IRCODON [Concomitant]
     Active Substance: OXYCODONE HYDROCHLORIDE
     Indication: PAIN
     Dosage: 5 MG, QID (1 TABLET)
     Route: 048
     Dates: start: 20160323
  10. EPS [Concomitant]
     Indication: NEUROENDOCRINE CARCINOMA
     Dosage: STRENGTH: 100MG/5ML, 100 MG, QD, CYCLE 1
     Route: 042
     Dates: start: 20160325, end: 20160327
  11. DEXAMETHASONE SODIUM PHOSPHATE. [Concomitant]
     Active Substance: DEXAMETHASONE SODIUM PHOSPHATE
     Indication: PREMEDICATION
     Dosage: STRENGTH: 5MG/ML, 10 MG, ONCE,
     Route: 042
     Dates: start: 20160325, end: 20160327
  12. ADELAVIN (FLAVIN ADENINE DINUCLEOTIDE (+) LIVER EXTRACT) [Concomitant]
     Indication: HEPATIC CANCER
     Dosage: 2 ML, QD
     Route: 042
     Dates: start: 20160319
  13. TARGIN [Concomitant]
     Active Substance: NALOXONE HYDROCHLORIDE\OXYCODONE HYDROCHLORIDE
     Indication: PAIN
     Dosage: STRENGTH: 10/5 MG, 1 DF, BID (1 TABLET)
     Route: 048
     Dates: start: 20160322, end: 20160408

REACTIONS (3)
  - Cytopenia [Recovered/Resolved]
  - Acute kidney injury [Recovered/Resolved]
  - Decreased appetite [Recovering/Resolving]

NARRATIVE: CASE EVENT DATE: 20160329
